FAERS Safety Report 14670435 (Version 15)
Quarter: 2018Q3

REPORT INFORMATION
  Report Type: Report from Study
  Country: CA (occurrence: CA)
  Receive Date: 20180322
  Receipt Date: 20180928
  Transmission Date: 20181010
  Serious: Yes (Other)
  Sender: FDA-Public Use
  Company Number: CA-UCBSA-2017002624

PATIENT
  Age: 64 Year
  Sex: Female
  Weight: 67 kg

DRUGS (30)
  1. CERTOLIZUMAB PEGOL RA [Suspect]
     Active Substance: CERTOLIZUMAB PEGOL
     Dosage: 200 MG, EV 2 WEEKS(QOW)
     Route: 058
  2. BENADRYL [Concomitant]
     Active Substance: DIPHENHYDRAMINE HYDROCHLORIDE
     Indication: PRODUCT USED FOR UNKNOWN INDICATION
     Dosage: 50 MG, ONCE DAILY (QD)
     Route: 048
  3. BENADRYL [Concomitant]
     Active Substance: DIPHENHYDRAMINE HYDROCHLORIDE
     Indication: MIGRAINE
     Dosage: UNK
     Route: 042
  4. VITAMIN B12 [Concomitant]
     Active Substance: CYANOCOBALAMIN
     Indication: PRODUCT USED FOR UNKNOWN INDICATION
     Dosage: UNK
  5. BACITRACIN W/POLYMYXIN B SULFATE [Concomitant]
     Indication: RASH PRURITIC
     Dosage: UNK
  6. BECONASE AQ [Concomitant]
     Active Substance: BECLOMETHASONE DIPROPIONATE MONOHYDRATE
     Indication: PRODUCT USED FOR UNKNOWN INDICATION
  7. VENTOLIN [Concomitant]
     Active Substance: ALBUTEROL SULFATE
     Indication: PRODUCT USED FOR UNKNOWN INDICATION
     Dosage: 100 ?G, 4X/DAY (QID)
  8. PREDNISONE. [Concomitant]
     Active Substance: PREDNISONE
     Indication: ARTHRITIS
  9. DOMPERIDONE [Concomitant]
     Active Substance: DOMPERIDONE
     Indication: PRODUCT USED FOR UNKNOWN INDICATION
  10. CERTOLIZUMAB PEGOL RA [Suspect]
     Active Substance: CERTOLIZUMAB PEGOL
     Dosage: 400 MG, EV 2 WEEKS(QOW)
     Route: 058
     Dates: start: 20160919
  11. CERTOLIZUMAB PEGOL RA [Suspect]
     Active Substance: CERTOLIZUMAB PEGOL
     Dosage: 200 MG, EV 2 WEEKS(QOW)
     Route: 058
  12. PERCOCET [Concomitant]
     Active Substance: ACETAMINOPHEN\OXYCODONE HYDROCHLORIDE
     Dosage: 4/DAY
  13. GABAPENTIN. [Concomitant]
     Active Substance: GABAPENTIN
     Dosage: 1 DF, ONCE DAILY (QD)
  14. GABAPENTIN. [Concomitant]
     Active Substance: GABAPENTIN
     Dosage: 2 DF, 3X/DAY (TID)
  15. GABAPENTIN. [Concomitant]
     Active Substance: GABAPENTIN
     Indication: PRODUCT USED FOR UNKNOWN INDICATION
     Dosage: 3 DF, 3X/DAY (TID)
  16. PREDNISONE. [Concomitant]
     Active Substance: PREDNISONE
     Indication: PRODUCT USED FOR UNKNOWN INDICATION
     Dosage: 50 MG, ONCE DAILY (QD)
     Route: 048
  17. ATROVENT [Concomitant]
     Active Substance: IPRATROPIUM BROMIDE
     Indication: PRODUCT USED FOR UNKNOWN INDICATION
     Dosage: 20 ?G, 4X/DAY (QID)
  18. CERTOLIZUMAB PEGOL RA [Suspect]
     Active Substance: CERTOLIZUMAB PEGOL
     Dosage: 400 MG, EV 2 WEEKS(QOW)
     Route: 058
     Dates: start: 20161110
  19. CERTOLIZUMAB PEGOL RA [Suspect]
     Active Substance: CERTOLIZUMAB PEGOL
     Dosage: 400 MG, EV 2 WEEKS(QOW)
     Route: 058
     Dates: start: 20160919
  20. CERTOLIZUMAB PEGOL RA [Suspect]
     Active Substance: CERTOLIZUMAB PEGOL
     Dosage: 200 MG, EV 2 WEEKS(QOW)
     Dates: start: 2018
  21. PERCOCET [Concomitant]
     Active Substance: ACETAMINOPHEN\OXYCODONE HYDROCHLORIDE
     Dosage: 2 EXTRA PERCOCET PER DAY ABOVE HER REGULAR TWICE/DAY PERCOCET
  22. CERTOLIZUMAB PEGOL RA [Suspect]
     Active Substance: CERTOLIZUMAB PEGOL
     Dosage: 400 MG, EV 2 WEEKS(QOW)
     Route: 058
     Dates: start: 20160919, end: 20161006
  23. CERTOLIZUMAB PEGOL RA [Suspect]
     Active Substance: CERTOLIZUMAB PEGOL
     Dosage: 200 MG, EV 2 WEEKS(QOW)
     Dates: start: 2018, end: 2018
  24. PERCOCET [Concomitant]
     Active Substance: ACETAMINOPHEN\OXYCODONE HYDROCHLORIDE
     Indication: PRODUCT USED FOR UNKNOWN INDICATION
     Dosage: UNK, 3X/DAY (TID)
  25. MOXIFLOXACIN. [Concomitant]
     Active Substance: MOXIFLOXACIN
     Indication: PRODUCT USED FOR UNKNOWN INDICATION
  26. DEXAMETHASONE. [Concomitant]
     Active Substance: DEXAMETHASONE
     Indication: RHEUMATOID ARTHRITIS
     Dosage: UNK
     Dates: start: 20180515
  27. CERTOLIZUMAB PEGOL RA [Suspect]
     Active Substance: CERTOLIZUMAB PEGOL
     Indication: RHEUMATOID ARTHRITIS
     Dosage: 400 MG, EV 2 WEEKS(QOW)
     Route: 058
     Dates: start: 20160919
  28. CERTOLIZUMAB PEGOL RA [Suspect]
     Active Substance: CERTOLIZUMAB PEGOL
     Dosage: 200 MG, EV 2 WEEKS(QOW)
     Dates: start: 2018, end: 2018
  29. PERCOCET [Concomitant]
     Active Substance: ACETAMINOPHEN\OXYCODONE HYDROCHLORIDE
     Dosage: UNK, ONCE DAILY (QD)
  30. TEMAZEPAM. [Concomitant]
     Active Substance: TEMAZEPAM
     Indication: PRODUCT USED FOR UNKNOWN INDICATION
     Dosage: UNK

REACTIONS (51)
  - Back injury [Recovered/Resolved]
  - Somnolence [Not Recovered/Not Resolved]
  - Anosmia [Unknown]
  - Malaise [Unknown]
  - Mental disorder [Not Recovered/Not Resolved]
  - Rash pruritic [Recovering/Resolving]
  - Rhinorrhoea [Not Recovered/Not Resolved]
  - Infection [Unknown]
  - Abnormal dreams [Unknown]
  - Oedema [Recovered/Resolved]
  - Migraine [Not Recovered/Not Resolved]
  - Anxiety [Unknown]
  - Stress [Unknown]
  - Bone pain [Unknown]
  - Abdominal distension [Not Recovered/Not Resolved]
  - Decreased appetite [Not Recovered/Not Resolved]
  - Muscle tightness [Recovered/Resolved]
  - Depression [Not Recovered/Not Resolved]
  - Fall [Recovered/Resolved]
  - Constipation [Unknown]
  - Contusion [Unknown]
  - Lacrimation increased [Unknown]
  - Eye pruritus [Unknown]
  - Rheumatoid arthritis [Recovered/Resolved]
  - Feeling abnormal [Not Recovered/Not Resolved]
  - Weight increased [Unknown]
  - Nasal congestion [Not Recovered/Not Resolved]
  - Pallor [Unknown]
  - Pyrexia [Not Recovered/Not Resolved]
  - Sinus disorder [Unknown]
  - Back pain [Not Recovered/Not Resolved]
  - Emphysema [Unknown]
  - Insomnia [Unknown]
  - Hepatomegaly [Not Recovered/Not Resolved]
  - Insomnia [Unknown]
  - Facial bones fracture [Unknown]
  - Tremor [Unknown]
  - Productive cough [Not Recovered/Not Resolved]
  - Varicose vein [Unknown]
  - Pneumonia [Unknown]
  - Arthritis [Recovered/Resolved]
  - Nasal obstruction [Unknown]
  - Fatigue [Unknown]
  - Localised infection [Recovered/Resolved]
  - Cataract [Unknown]
  - Abdominal pain [Recovering/Resolving]
  - Vision blurred [Unknown]
  - Headache [Unknown]
  - Lymphadenopathy [Not Recovered/Not Resolved]
  - Hypoaesthesia [Unknown]
  - Mass [Unknown]

NARRATIVE: CASE EVENT DATE: 201609
